FAERS Safety Report 22604182 (Version 1)
Quarter: 2023Q2

REPORT INFORMATION
  Report Type: Spontaneous
  Country: US (occurrence: US)
  Receive Date: 20230615
  Receipt Date: 20230615
  Transmission Date: 20230721
  Serious: No
  Sender: FDA-Public Use
  Company Number: US-drreddys-SPO/USA/23/0165750

PATIENT
  Age: 12 Year
  Sex: Female

DRUGS (1)
  1. ZENATANE [Suspect]
     Active Substance: ISOTRETINOIN
     Indication: Product used for unknown indication
     Dosage: RMA ISSUE DATE: 15 FEBRUARY 2023 01:45:47 PM, 20 MARCH 2023 04:29:58 PM, 18 APRIL 2023 03;03:27 PM

REACTIONS (1)
  - Treatment noncompliance [Unknown]
